FAERS Safety Report 18769842 (Version 6)
Quarter: 2021Q1

REPORT INFORMATION
  Report Type: Report from Study
  Country: ES (occurrence: ES)
  Receive Date: 20210121
  Receipt Date: 20210224
  Transmission Date: 20210419
  Serious: Yes (Death, Hospitalization)
  Sender: FDA-Public Use
  Company Number: ES-ROCHE-2752124

PATIENT
  Age: 73 Year
  Sex: Female
  Weight: 47.4 kg

DRUGS (24)
  1. PRADAXA [Concomitant]
     Active Substance: DABIGATRAN ETEXILATE MESYLATE
     Indication: ATRIAL FIBRILLATION
     Route: 048
     Dates: start: 2014
  2. LANTUS [Concomitant]
     Active Substance: INSULIN GLARGINE
     Indication: TYPE 2 DIABETES MELLITUS
     Route: 058
     Dates: start: 20201201
  3. EUTHYROX [Concomitant]
     Active Substance: LEVOTHYROXINE SODIUM
     Indication: HYPOTHYROIDISM
     Route: 048
     Dates: start: 20210104
  4. ATEZOLIZUMAB. [Suspect]
     Active Substance: ATEZOLIZUMAB
     Indication: PANCREATIC CARCINOMA METASTATIC
     Dosage: ON DAYS 1 AND 15 OF EACH 28 DAY CYCLE. ON 22/DEC/2020, SHE RECEIVED MOST RECENT DOSE OF IV ATEZOLIZU
     Route: 042
     Dates: start: 20201014
  5. PARACETAMOL [Concomitant]
     Active Substance: ACETAMINOPHEN
     Indication: MUSCULOSKELETAL PAIN
     Dosage: 1
     Route: 048
     Dates: start: 202008
  6. LORAZEPAM. [Concomitant]
     Active Substance: LORAZEPAM
     Indication: INSOMNIA
     Route: 048
     Dates: start: 202006
  7. DEXAMETHASONE. [Concomitant]
     Active Substance: DEXAMETHASONE
     Route: 042
     Dates: start: 20201222, end: 20201222
  8. MTIG 7192A [Suspect]
     Active Substance: TIRAGOLUMAB
     Indication: PANCREATIC CARCINOMA METASTATIC
     Dosage: ON DAYS 1 AND 15 OF EACH 28 DAY CYCLE. ON 22/DEC/2020, SHE RECEIVED MOST RECENT DOSE OF IV TIROGOLUM
     Route: 042
     Dates: start: 20201014
  9. SIMVASTATIN. [Concomitant]
     Active Substance: SIMVASTATIN
     Indication: DYSLIPIDAEMIA
     Route: 048
     Dates: start: 2018
  10. SPIRAXIN [Concomitant]
     Active Substance: RIFAXIMIN
     Indication: DIVERTICULUM
     Route: 048
     Dates: start: 202008
  11. COCAINE [Concomitant]
     Active Substance: COCAINE
  12. NOLOTIL [Concomitant]
     Indication: MUSCULOSKELETAL PAIN
     Dosage: 1
     Route: 048
     Dates: start: 202008
  13. OMEPRAZOLE. [Concomitant]
     Active Substance: OMEPRAZOLE
     Route: 048
     Dates: start: 202002
  14. FLATORIL (SPAIN) [Concomitant]
     Dosage: 1
     Route: 048
     Dates: start: 202008
  15. KREON [Concomitant]
     Active Substance: PANCRELIPASE
     Indication: PANCREATITIS CHRONIC
     Route: 048
     Dates: start: 202008
  16. EUTHYROX [Concomitant]
     Active Substance: LEVOTHYROXINE SODIUM
     Route: 048
     Dates: start: 20210111
  17. GEMCITABINE. [Suspect]
     Active Substance: GEMCITABINE
     Indication: PANCREATIC CARCINOMA METASTATIC
     Dosage: ON DAYS 1, 8, AND 15 OF EACH 28 DAY CYCLE. FIRST DOSE ADMINISTERED (1410 MG). ON 22/DEC/2020, SHE RE
     Route: 042
     Dates: start: 20201014
  18. GRANISETRON [Concomitant]
     Active Substance: GRANISETRON
     Route: 042
     Dates: start: 20201216, end: 20201216
  19. APIDRA [Concomitant]
     Active Substance: INSULIN GLULISINE
     Indication: TYPE 2 DIABETES MELLITUS
     Route: 058
     Dates: start: 2017
  20. PLANTAGO OVATA [Concomitant]
     Active Substance: HERBALS\PLANTAGO OVATA LEAF
     Indication: CONSTIPATION
     Dosage: 1 TBSP
     Route: 048
     Dates: start: 2015
  21. GRANISETRON [Concomitant]
     Active Substance: GRANISETRON
     Route: 042
     Dates: start: 20201222, end: 20201222
  22. NAB?PACLITAXEL [Suspect]
     Active Substance: PACLITAXEL
     Indication: PANCREATIC CARCINOMA METASTATIC
     Dosage: ON DAYS 1, 8, AND 15 OF EACH 28 DAY CYCLE. ON 22/DEC/2020, SHE RECEIVED MOST RECENT DOSE OF IV NAB?P
     Route: 042
     Dates: start: 20201014
  23. DEXAMETHASONE. [Concomitant]
     Active Substance: DEXAMETHASONE
     Route: 042
     Dates: start: 20201216, end: 20201216
  24. CAFFEINE. [Concomitant]
     Active Substance: CAFFEINE

REACTIONS (1)
  - Gait disturbance [Not Recovered/Not Resolved]

NARRATIVE: CASE EVENT DATE: 20210114
